FAERS Safety Report 5828877-3 (Version None)
Quarter: 2008Q3

REPORT INFORMATION
  Report Type: 
  Country: None (occurrence: None)
  Receive Date: 20080731
  Receipt Date: 20080725
  Transmission Date: 20090109
  Serious: Yes (Hospitalization)
  Sender: FDA-Public Use
  Company Number: US-AMGEN-US297231

PATIENT
  Sex: Female

DRUGS (5)
  1. AMG 655 [Suspect]
     Indication: NEOPLASM MALIGNANT
     Route: 042
     Dates: start: 20080724
  2. PANITUMUMAB [Suspect]
     Indication: COLORECTAL CANCER
     Route: 042
     Dates: start: 20080724
  3. LORTAB [Concomitant]
     Route: 048
  4. METHADONE HCL [Concomitant]
     Route: 048
  5. LASIX [Concomitant]
     Route: 048

REACTIONS (1)
  - PYREXIA [None]
